FAERS Safety Report 5742760-3 (Version None)
Quarter: 2008Q2

REPORT INFORMATION
  Report Type: 
  Country: None (occurrence: None)
  Receive Date: 20080519
  Receipt Date: 20080304
  Transmission Date: 20081010
  Serious: Yes (Death, Life-Threatening, Hospitalization, Disabling)
  Sender: FDA-Public Use
  Company Number: US-MERCK-0802USA05468

PATIENT
  Age: 39 Year
  Sex: Female
  Weight: 36 kg

DRUGS (28)
  1. ISENTRESS [Suspect]
     Indication: HIV INFECTION
     Route: 048
     Dates: start: 20071227, end: 20080131
  2. FUZEON [Concomitant]
     Route: 065
  3. NORVIR [Concomitant]
     Indication: HIV INFECTION
     Route: 048
     Dates: start: 20071227, end: 20080117
  4. NORVIR [Concomitant]
     Route: 048
     Dates: start: 20080118
  5. NORVIR [Concomitant]
     Route: 065
     Dates: start: 20080119, end: 20080131
  6. TRUVADA [Concomitant]
     Route: 065
  7. BIAXIN [Concomitant]
     Indication: MYCOBACTERIA TEST
     Route: 048
     Dates: start: 20080104, end: 20080131
  8. BACTRIM DS [Concomitant]
     Indication: ANTIFUNGAL PROPHYLAXIS
     Route: 048
     Dates: start: 20071202
  9. BACTRIM DS [Concomitant]
     Route: 041
     Dates: start: 20071202
  10. PEPCID [Concomitant]
     Indication: ABDOMINAL DISCOMFORT
     Route: 065
  11. EPZICOM [Concomitant]
     Route: 048
     Dates: start: 20071227, end: 20080131
  12. ZITHROMAX [Concomitant]
     Route: 048
     Dates: start: 20071222
  13. PROCRIT [Concomitant]
     Indication: ANAEMIA
     Route: 058
     Dates: start: 20071222
  14. CANCIDAS [Concomitant]
     Indication: OESOPHAGEAL CANDIDIASIS
     Route: 042
     Dates: start: 20071221, end: 20080107
  15. VANCOMYCIN [Concomitant]
     Indication: ABSCESS
     Route: 042
     Dates: start: 20071231, end: 20080102
  16. INVIRASE [Concomitant]
     Indication: HIV INFECTION
     Route: 048
     Dates: start: 20071227, end: 20080124
  17. REYATAZ [Concomitant]
     Route: 048
     Dates: start: 20071227, end: 20080124
  18. PREZISTA [Concomitant]
     Indication: HIV INFECTION
     Route: 048
     Dates: start: 20080118, end: 20080131
  19. ABELCET [Concomitant]
     Indication: OESOPHAGEAL CANDIDIASIS
     Route: 042
     Dates: start: 20080113, end: 20080113
  20. ABELCET [Concomitant]
     Route: 042
     Dates: start: 20080123, end: 20080123
  21. ABELCET [Concomitant]
     Route: 042
     Dates: start: 20080116, end: 20080116
  22. ZOFRAN [Concomitant]
     Indication: NAUSEA
     Route: 048
     Dates: start: 20080125, end: 20080130
  23. ETHAMBUTOL HYDROCHLORIDE [Concomitant]
     Indication: MYCOBACTERIA TEST
     Route: 048
     Dates: start: 20080104, end: 20080131
  24. ACYCLOVIR [Concomitant]
     Indication: HERPES SIMPLEX
     Route: 048
     Dates: start: 20080123, end: 20080131
  25. PERCOCET [Concomitant]
     Indication: PAIN
     Route: 048
     Dates: start: 20071227, end: 20080131
  26. CIDOFOVIR [Concomitant]
     Route: 042
     Dates: start: 20080103, end: 20080103
  27. [THERAPY UNSPECIFIED] [Concomitant]
     Indication: OESOPHAGEAL CANDIDIASIS
     Route: 048
     Dates: start: 20080108, end: 20080111
  28. [THERAPY UNSPECIFIED] [Concomitant]
     Route: 048
     Dates: start: 20080125, end: 20080131

REACTIONS (3)
  - ANAEMIA [None]
  - BONE MARROW DISORDER [None]
  - THROMBOCYTOPENIA [None]
